FAERS Safety Report 16674070 (Version 1)
Quarter: 2019Q3

REPORT INFORMATION
  Report Type: Spontaneous
  Country: US (occurrence: US)
  Receive Date: 20190621
  Receipt Date: 20190621
  Transmission Date: 20191004
  Serious: No
  Sender: FDA-Public Use
  Company Number: None

PATIENT
  Age: 28 Year
  Sex: Male

DRUGS (3)
  1. VENTOLIN [Concomitant]
     Active Substance: ALBUTEROL SULFATE
  2. FLONASE [Concomitant]
     Active Substance: FLUTICASONE PROPIONATE
  3. REMICADE [Suspect]
     Active Substance: INFLIXIMAB
     Dosage: ?          OTHER FREQUENCY:UNKNOWN;?
     Route: 042

REACTIONS (3)
  - Diarrhoea [None]
  - Treatment failure [None]
  - Therapy cessation [None]

NARRATIVE: CASE EVENT DATE: 20190601
